FAERS Safety Report 6277706-5 (Version None)
Quarter: 2009Q3

REPORT INFORMATION
  Report Type: 
  Country: None (occurrence: None)
  Receive Date: 20090722
  Receipt Date: 20090713
  Transmission Date: 20100115
  Serious: Yes (Other)
  Sender: FDA-Public Use
  Company Number: A0794683A

PATIENT
  Sex: Male

DRUGS (2)
  1. LAMICTAL [Suspect]
     Indication: DRUG USE FOR UNKNOWN INDICATION
     Dosage: 200MG TWICE PER DAY
     Route: 065
     Dates: start: 20080917
  2. ANTI-EPILEPTIC MEDICATION [Concomitant]

REACTIONS (8)
  - BRAIN INJURY [None]
  - CONVULSION [None]
  - CYANOSIS [None]
  - FALL [None]
  - GRAND MAL CONVULSION [None]
  - HEAD INJURY [None]
  - IMPAIRED DRIVING ABILITY [None]
  - RESPIRATORY ARREST [None]
